FAERS Safety Report 22286711 (Version 2)
Quarter: 2023Q2

REPORT INFORMATION
  Report Type: Spontaneous
  Country: US (occurrence: None)
  Receive Date: 20230505
  Receipt Date: 20230510
  Transmission Date: 20230722
  Serious: Yes (Hospitalization)
  Sender: FDA-Public Use
  Company Number: US-ROCHE-3340369

PATIENT
  Age: 44 Year
  Sex: Male
  Weight: 71.2 kg

DRUGS (1)
  1. OCREVUS [Suspect]
     Active Substance: OCRELIZUMAB
     Indication: Multiple sclerosis relapse
     Dosage: DATE OF THERAPY: 09/DEC/2022
     Route: 065
     Dates: start: 20220519

REACTIONS (3)
  - Respiratory moniliasis [Unknown]
  - Blood immunoglobulin G increased [Unknown]
  - Pneumonia [Unknown]
